FAERS Safety Report 10005888 (Version 2)
Quarter: 2014Q2

REPORT INFORMATION
  Report Type: Spontaneous
  Country: US (occurrence: US)
  Receive Date: 20140313
  Receipt Date: 20140616
  Transmission Date: 20141212
  Serious: Yes (Life-Threatening, Hospitalization, Other)
  Sender: FDA-Public Use
  Company Number: US-ELI_LILLY_AND_COMPANY-US201403002626

PATIENT
  Age: 54 Year
  Sex: Male

DRUGS (21)
  1. AXIRON [Suspect]
     Indication: ANDROGEN DEFICIENCY
     Dosage: 60 MG, QD
     Route: 061
     Dates: start: 20111010
  2. ATENOLOL [Suspect]
     Indication: VENTRICULAR EXTRASYSTOLES
     Dosage: 25 MG, QD
     Route: 048
     Dates: start: 19990118
  3. ATENOLOL [Suspect]
     Indication: PRESYNCOPE
  4. AMIODARONE [Suspect]
     Indication: VENTRICULAR TACHYCARDIA
     Dosage: UNK, UNKNOWN
     Route: 065
     Dates: start: 20130730
  5. LASIX                              /00032601/ [Concomitant]
     Indication: PRODUCT USED FOR UNKNOWN INDICATION
     Dosage: UNK, UNKNOWN
     Route: 065
     Dates: start: 20130730
  6. NORPACE [Concomitant]
     Indication: VENTRICULAR EXTRASYSTOLES
     Dosage: 150 MG, QD
     Route: 065
     Dates: start: 19990118
  7. NIASPAN [Concomitant]
     Indication: HYPERLIPIDAEMIA
     Dosage: 150 MG, QD
     Route: 048
     Dates: start: 20101014
  8. CRESTOR [Concomitant]
     Indication: PRODUCT USED FOR UNKNOWN INDICATION
     Dosage: 40 MG, QD
     Route: 048
     Dates: start: 20101014
  9. CYMBALTA [Concomitant]
     Indication: DEPRESSION
     Dosage: 60 MG, UNK
     Route: 048
     Dates: start: 20101014
  10. WELLBUTRIN [Concomitant]
     Indication: PRODUCT USED FOR UNKNOWN INDICATION
     Dosage: 150 MG, QD
     Route: 065
     Dates: start: 20101014
  11. ASPIRIN [Concomitant]
     Indication: PRODUCT USED FOR UNKNOWN INDICATION
     Dosage: 325 MG, QD
     Route: 048
     Dates: start: 20101014
  12. SYNTHROID [Concomitant]
     Indication: PRODUCT USED FOR UNKNOWN INDICATION
     Dosage: 88 UG, QD
     Route: 065
     Dates: start: 20101014
  13. CIALIS [Concomitant]
     Indication: PRODUCT USED FOR UNKNOWN INDICATION
     Dosage: 10 MG, PRN
     Route: 048
     Dates: start: 20101014
  14. VITAMIN D                          /00107901/ [Concomitant]
     Indication: PRODUCT USED FOR UNKNOWN INDICATION
     Dosage: 5000 IU, 2/W
     Route: 065
     Dates: start: 20111031
  15. IRON [Concomitant]
     Indication: PRODUCT USED FOR UNKNOWN INDICATION
     Dosage: UNK, QD
     Route: 048
     Dates: start: 20111031
  16. MULTAQ [Concomitant]
     Indication: ATRIAL FIBRILLATION
     Dosage: 400 MG, BID
     Route: 048
     Dates: start: 20111122
  17. PRADAXA [Concomitant]
     Indication: PRODUCT USED FOR UNKNOWN INDICATION
     Dosage: 75 MG, BID
     Route: 065
     Dates: start: 20111208
  18. COREG [Concomitant]
     Indication: PRODUCT USED FOR UNKNOWN INDICATION
     Dosage: UNK, BID
     Route: 065
     Dates: start: 20130826
  19. PLAVIX [Concomitant]
     Indication: PRODUCT USED FOR UNKNOWN INDICATION
     Dosage: 75 MG, QD
     Route: 048
     Dates: start: 20130826
  20. NITROSTAT [Concomitant]
     Indication: PRODUCT USED FOR UNKNOWN INDICATION
     Dosage: 0.4 MG, PRN
     Dates: start: 20130826
  21. ANDROGEL [Concomitant]
     Indication: PRODUCT USED FOR UNKNOWN INDICATION
     Dosage: UNK UNK, QD
     Route: 061
     Dates: start: 20130826

REACTIONS (18)
  - Cardiac arrest [Unknown]
  - Myocardial infarction [Unknown]
  - Ventricular tachycardia [Unknown]
  - Ventricular fibrillation [Unknown]
  - Respiratory failure [Unknown]
  - Myocardial infarction [Unknown]
  - Cardiac failure acute [Unknown]
  - Atrial fibrillation [Unknown]
  - Heart rate increased [Unknown]
  - Sinus bradycardia [Unknown]
  - Coronary artery occlusion [Unknown]
  - Left atrial dilatation [Unknown]
  - Ejection fraction decreased [Not Recovered/Not Resolved]
  - Hyponatraemia [Unknown]
  - Hypogonadism [Unknown]
  - Sleep apnoea syndrome [Unknown]
  - Hypertension [Unknown]
  - Fatigue [Not Recovered/Not Resolved]
